FAERS Safety Report 5930126-2 (Version None)
Quarter: 2008Q4

REPORT INFORMATION
  Report Type: 
  Country: None (occurrence: None)
  Receive Date: 20081024
  Receipt Date: 20081020
  Transmission Date: 20090506
  Serious: No
  Sender: FDA-Public Use
  Company Number: US-B.I. PHARMACEUTICALS,INC./RIDGEFIELD-2008-BP-16109BP

PATIENT
  Age: 67 Year
  Sex: Female

DRUGS (1)
  1. DULCOLAX [Suspect]
     Indication: FAECES HARD
     Dosage: 200MG
     Route: 048
     Dates: end: 20081006

REACTIONS (2)
  - DIARRHOEA [None]
  - PAROSMIA [None]
